FAERS Safety Report 24640121 (Version 1)
Quarter: 2024Q4

REPORT INFORMATION
  Report Type: Spontaneous
  Country: GB (occurrence: GB)
  Receive Date: 20241120
  Receipt Date: 20241120
  Transmission Date: 20250115
  Serious: Yes (Other)
  Sender: TEVA
  Company Number: GB-MHRA-EMIS-7471-543d95c0-b290-4acb-91cf-cd7313970421

PATIENT
  Age: 72 Year
  Sex: Male
  Weight: 101 kg

DRUGS (6)
  1. TAMSULOSIN [Suspect]
     Active Substance: TAMSULOSIN
     Route: 065
     Dates: start: 20240924
  2. ZOLPIDEM [Concomitant]
     Active Substance: ZOLPIDEM TARTRATE
     Indication: Insomnia
     Dosage: TAKE ONE AT NIGHT FOR INSOMNIA WHEN REQUIRED EVERY 2-3 NIGHTS IN A REDUCING AMOUNT
     Dates: start: 20240808
  3. FLUOROURACIL [Concomitant]
     Active Substance: FLUOROURACIL
     Dosage: APPLY THINLY UPTO TWICE A DAY FOR A MAX OF 3 WEEKS 40G
     Dates: start: 20240923
  4. LIDOCAINE [Concomitant]
     Active Substance: LIDOCAINE
     Dosage: GIVEN
     Dates: start: 20240918
  5. BRINZOLAMIDE\TIMOLOL [Concomitant]
     Active Substance: BRINZOLAMIDE\TIMOLOL
     Dosage: BRINZOLAMIDE 10MG/ML / TIMOLOL 5MG/ML, ONE DROP TO BE USED IN THE AFFECTED EYE(S) TWICE A DAY 5ML
     Dates: start: 20240902
  6. BRINZOLAMIDE\TIMOLOL [Concomitant]
     Active Substance: BRINZOLAMIDE\TIMOLOL
     Dosage: BRINZOLAMIDE 10MG/ML / TIMOLOL 5MG/ML, ONE DROP TO BE USED IN THE AFFECTED EYE(S) TWICE A DAY 5ML
     Dates: start: 20240902

REACTIONS (5)
  - Joint swelling [Unknown]
  - Heart rate increased [Recovered/Resolved]
  - Peripheral swelling [Unknown]
  - Blood pressure increased [Unknown]
  - Respiratory rate increased [Unknown]
